FAERS Safety Report 8300930-4 (Version None)
Quarter: 2012Q2

REPORT INFORMATION
  Report Type: 
  Country: None (occurrence: None)
  Receive Date: 20120420
  Receipt Date: 20120409
  Transmission Date: 20120825
  Serious: Yes (Other)
  Sender: FDA-Public Use
  Company Number: US-JNJFOC-20120403855

PATIENT
  Sex: Female

DRUGS (4)
  1. REMICADE [Suspect]
     Indication: RHEUMATOID ARTHRITIS
     Route: 042
     Dates: start: 20120120, end: 20120312
  2. REMICADE [Suspect]
     Route: 042
     Dates: start: 20080202, end: 20110421
  3. ORENCIA [Concomitant]
     Indication: PRODUCT USED FOR UNKNOWN INDICATION
     Dates: start: 20110201, end: 20120120
  4. REMICADE [Suspect]
     Route: 042
     Dates: start: 20020101

REACTIONS (1)
  - LYMPHOMA [None]
